FAERS Safety Report 8082016-X (Version None)
Quarter: 2012Q1

REPORT INFORMATION
  Report Type: 
  Country: None (occurrence: None)
  Receive Date: 20120130
  Receipt Date: 20120120
  Transmission Date: 20120608
  Serious: Yes (Other)
  Sender: FDA-Public Use
  Company Number: PHHY2012BR006359

PATIENT
  Sex: Female
  Weight: 95 kg

DRUGS (4)
  1. ALPRAZOLAM [Suspect]
     Indication: SLEEP DISORDER
     Dosage: 2 MG, QD
     Route: 048
  2. CITALOPRAM [Suspect]
     Indication: DEPRESSION
     Dosage: 20 MG, QD
     Route: 048
  3. DIOVAN HCT [Concomitant]
     Indication: HYPERTENSION
     Dosage: 1 DF, QD
     Route: 048
     Dates: start: 20110101
  4. OSTEONUTRI [Concomitant]
     Indication: OSTEOPOROSIS

REACTIONS (3)
  - HYPERTENSION [None]
  - HEADACHE [None]
  - NECK PAIN [None]
